FAERS Safety Report 13187919 (Version 5)
Quarter: 2017Q3

REPORT INFORMATION
  Report Type: Spontaneous
  Country: US (occurrence: US)
  Receive Date: 20170206
  Receipt Date: 20170901
  Transmission Date: 20171127
  Serious: Yes (Congenital Anomaly, Other)
  Sender: FDA-Public Use
  Company Number: PHEH2017US003360

PATIENT
  Sex: Male

DRUGS (2)
  1. ZOFRAN [Suspect]
     Active Substance: ONDANSETRON HYDROCHLORIDE
     Indication: FOETAL EXPOSURE DURING PREGNANCY
     Dosage: MOTHER^S DOSE: 08 MG, PRN
     Route: 064
  2. ONDANSETRON [Suspect]
     Active Substance: ONDANSETRON
     Indication: FOETAL EXPOSURE DURING PREGNANCY
     Route: 064

REACTIONS (25)
  - Foetal exposure during pregnancy [Unknown]
  - Tooth disorder [Unknown]
  - Lymphadenopathy [Unknown]
  - Seasonal allergy [Unknown]
  - Cerumen impaction [Unknown]
  - Cardiac murmur [Unknown]
  - Sinusitis [Unknown]
  - Upper respiratory tract infection [Unknown]
  - Gastroenteritis [Unknown]
  - Diarrhoea [Unknown]
  - Heart disease congenital [Unknown]
  - Influenza [Unknown]
  - Nasal congestion [Unknown]
  - Anaemia [Unknown]
  - Conjunctivitis [Unknown]
  - Viral infection [Unknown]
  - Otitis media [Unknown]
  - Bronchiolitis [Unknown]
  - Cough [Unknown]
  - Dehydration [Unknown]
  - Fever neonatal [Unknown]
  - Urinary tract infection neonatal [Unknown]
  - Atrial septal defect [Unknown]
  - Abnormal weight gain [Unknown]
  - Rhinorrhoea [Unknown]

NARRATIVE: CASE EVENT DATE: 20150601
